FAERS Safety Report 9513012 (Version 2)
Quarter: 2013Q3

REPORT INFORMATION
  Report Type: Spontaneous
  Country: US (occurrence: US)
  Receive Date: 20130910
  Receipt Date: 20130924
  Transmission Date: 20140515
  Serious: No
  Sender: FDA-Public Use
  Company Number: US-PFIZER INC-2013257702

PATIENT
  Sex: 0

DRUGS (1)
  1. LYRICA [Suspect]
     Dosage: 300 MG, TWICE A DAY
     Dates: start: 2008

REACTIONS (3)
  - Nerve injury [Unknown]
  - Pain [Unknown]
  - Herpes zoster [Unknown]
